FAERS Safety Report 7329214-8 (Version None)
Quarter: 2011Q1

REPORT INFORMATION
  Report Type: 
  Country: None (occurrence: None)
  Receive Date: 20110303
  Receipt Date: 20110224
  Transmission Date: 20110831
  Serious: Yes (Hospitalization)
  Sender: FDA-Public Use
  Company Number: A0897823A

PATIENT
  Sex: Male

DRUGS (2)
  1. AVANDAMET [Suspect]
     Route: 048
     Dates: start: 20041023, end: 20080201
  2. AVANDIA [Suspect]
     Route: 048
     Dates: start: 20041001

REACTIONS (1)
  - MYOCARDIAL INFARCTION [None]
